FAERS Safety Report 24305293 (Version 1)
Quarter: 2024Q3

REPORT INFORMATION
  Report Type: Spontaneous
  Country: CN (occurrence: CN)
  Receive Date: 20240911
  Receipt Date: 20240911
  Transmission Date: 20241017
  Serious: Yes (Other)
  Sender: ROCHE
  Company Number: CN-ROCHE-10000072489

PATIENT
  Age: 63 Year
  Sex: Male

DRUGS (7)
  1. TECENTRIQ [Suspect]
     Active Substance: ATEZOLIZUMAB
     Indication: Lung neoplasm malignant
     Route: 042
     Dates: start: 20240719, end: 20240719
  2. CARBOPLATIN [Suspect]
     Active Substance: CARBOPLATIN
     Indication: Lung neoplasm malignant
     Route: 042
     Dates: start: 20240720, end: 20240720
  3. ETOPOSIDE [Suspect]
     Active Substance: ETOPOSIDE
     Indication: Lung neoplasm malignant
     Route: 042
     Dates: start: 20240719, end: 20240723
  4. SODIUM CHLORIDE [Concomitant]
     Active Substance: SODIUM CHLORIDE
     Indication: Lung neoplasm malignant
     Route: 042
     Dates: start: 20240719, end: 20240723
  5. SODIUM CHLORIDE [Concomitant]
     Active Substance: SODIUM CHLORIDE
     Route: 042
     Dates: start: 20240719, end: 20240719
  6. DEXTROSE [Concomitant]
     Active Substance: DEXTROSE\DEXTROSE MONOHYDRATE
     Indication: Lung neoplasm malignant
     Route: 042
     Dates: start: 20240720, end: 20240720
  7. ELTROMBOPAG [Concomitant]
     Active Substance: ELTROMBOPAG
     Route: 048

REACTIONS (1)
  - Myelosuppression [Recovering/Resolving]

NARRATIVE: CASE EVENT DATE: 20240802
